FAERS Safety Report 18482159 (Version 1)
Quarter: 2020Q4

REPORT INFORMATION
  Report Type: Spontaneous
  Country: US (occurrence: US)
  Receive Date: 20201110
  Receipt Date: 20201110
  Transmission Date: 20210114
  Serious: Yes (Hospitalization)
  Sender: FDA-Public Use
  Company Number: US-ROCHE-2705233

PATIENT
  Age: 78 Year
  Sex: Male

DRUGS (13)
  1. OMEGA 3 ACID ETHYL ESTERS [Concomitant]
     Active Substance: OMEGA-3-ACID ETHYL ESTERS
  2. METFORMIN [Concomitant]
     Active Substance: METFORMIN HYDROCHLORIDE
  3. LISINOPRIL. [Concomitant]
     Active Substance: LISINOPRIL
  4. ATENOLOL. [Concomitant]
     Active Substance: ATENOLOL
  5. ESBRIET [Suspect]
     Active Substance: PIRFENIDONE
     Indication: IDIOPATHIC PULMONARY FIBROSIS
     Dosage: 3 TABLETS 3 TIMES A DAY
     Route: 048
     Dates: start: 20200723
  6. HUMULIN NOS [Concomitant]
     Active Substance: INSULIN HUMAN
  7. XARELTO [Concomitant]
     Active Substance: RIVAROXABAN
  8. PANTOPRAZOLE [Concomitant]
     Active Substance: PANTOPRAZOLE
  9. PREDNISONE. [Concomitant]
     Active Substance: PREDNISONE
  10. FUROSEMIDE. [Concomitant]
     Active Substance: FUROSEMIDE
  11. CARTIA XT [Concomitant]
     Active Substance: DILTIAZEM HYDROCHLORIDE
  12. ATORVASTATIN [Concomitant]
     Active Substance: ATORVASTATIN
  13. PRADAXA [Concomitant]
     Active Substance: DABIGATRAN ETEXILATE MESYLATE

REACTIONS (3)
  - Headache [Unknown]
  - Arrhythmia [Unknown]
  - Gastric disorder [Unknown]

NARRATIVE: CASE EVENT DATE: 202009
